FAERS Safety Report 7538184-9 (Version None)
Quarter: 2011Q2

REPORT INFORMATION
  Report Type: 
  Country: None (occurrence: None)
  Receive Date: 20110609
  Receipt Date: 20110531
  Transmission Date: 20111010
  Serious: Yes (Hospitalization)
  Sender: FDA-Public Use
  Company Number: US-PFIZER INC-2011104503

PATIENT
  Age: 75 Year
  Sex: Female
  Weight: 57 kg

DRUGS (3)
  1. TEMSIROLIMUS [Suspect]
     Indication: NEOPLASM MALIGNANT
     Dosage: 10 MG Q 21 DAYS
     Route: 042
     Dates: start: 20110124, end: 20110418
  2. OXYCONTIN [Suspect]
  3. DOCETAXEL [Suspect]
     Indication: NEOPLASM MALIGNANT
     Dosage: 68.4 MG Q 21 DAYS
     Route: 042
     Dates: start: 20110124, end: 20110418

REACTIONS (8)
  - CONSTIPATION [None]
  - ANAEMIA [None]
  - DYSPNOEA [None]
  - WHITE BLOOD CELL COUNT DECREASED [None]
  - URINARY RETENTION [None]
  - BLOOD PHOSPHORUS ABNORMAL [None]
  - DEHYDRATION [None]
  - LYMPHOPENIA [None]
